FAERS Safety Report 25348653 (Version 3)
Quarter: 2025Q2

REPORT INFORMATION
  Report Type: Report from Study
  Country: US (occurrence: US)
  Receive Date: 20250522
  Receipt Date: 20250613
  Transmission Date: 20250717
  Serious: Yes (Hospitalization)
  Sender: EMD SERONO INC
  Company Number: US-Merck Healthcare KGaA-2025023702

PATIENT
  Age: 56 Year
  Sex: Female

DRUGS (1)
  1. MAVENCLAD [Suspect]
     Active Substance: CLADRIBINE
     Indication: Multiple sclerosis

REACTIONS (6)
  - Tooth infection [Recovered/Resolved]
  - Speech disorder [Unknown]
  - Dysphagia [Unknown]
  - Delusion [Unknown]
  - Oral infection [Unknown]
  - Abscess oral [Unknown]

NARRATIVE: CASE EVENT DATE: 20250507
